FAERS Safety Report 16808928 (Version 1)
Quarter: 2019Q3

REPORT INFORMATION
  Report Type: Spontaneous
  Country: FR (occurrence: FR)
  Receive Date: 20190916
  Receipt Date: 20190916
  Transmission Date: 20191005
  Serious: Yes (Hospitalization)
  Sender: FDA-Public Use
  Company Number: FR-ACCORD-154499

PATIENT
  Age: 18 Year
  Sex: Female
  Weight: 48 kg

DRUGS (6)
  1. KETOPROFEN MEDAC [Suspect]
     Active Substance: KETOPROFEN
     Indication: PAIN PROPHYLAXIS
     Dosage: STRENGTH: 100 MG / 4 ML
     Route: 042
     Dates: start: 20190606, end: 20190606
  2. NEFOPAM MEDISOL [Suspect]
     Active Substance: NEFOPAM HYDROCHLORIDE
     Indication: PAIN PROPHYLAXIS
     Dosage: STRENGTH: 20 MG/2 ML, SOLUTION INJECTABLE
     Route: 042
     Dates: start: 20190606, end: 20190606
  3. SUFENTANIL MYLAN [Suspect]
     Active Substance: SUFENTANIL
     Indication: INDUCTION OF ANAESTHESIA
     Route: 042
     Dates: start: 20190606, end: 20190606
  4. ONDANSETRON ACCORD [Suspect]
     Active Substance: ONDANSETRON
     Indication: PROPHYLAXIS OF NAUSEA AND VOMITING
     Dosage: STRENGTH: 2 MG/ML, SOLUTION INJECTABLE
     Route: 042
     Dates: start: 20190606, end: 20190606
  5. DROPERIDOL AGUETTANT [Suspect]
     Active Substance: DROPERIDOL
     Indication: PROPHYLAXIS OF NAUSEA AND VOMITING
     Dosage: STRENGTH:2.5 MG/1 ML, SOLUTION INJECTABLE (IV)
     Route: 042
     Dates: start: 20190606, end: 20190606
  6. CEFAZOLIN MYLAN [Suspect]
     Active Substance: CEFAZOLIN
     Indication: ANTIBIOTIC PROPHYLAXIS
     Dosage: STRENGTH: 1 G POWDER FOR SOLUTION FOR INJECTION (IM-IV)
     Route: 042
     Dates: start: 20190606, end: 20190606

REACTIONS (1)
  - Type I hypersensitivity [Recovered/Resolved]

NARRATIVE: CASE EVENT DATE: 20190606
